FAERS Safety Report 16298114 (Version 2)
Quarter: 2020Q4

REPORT INFORMATION
  Report Type: Spontaneous
  Country: US (occurrence: US)
  Receive Date: 20190510
  Receipt Date: 20201223
  Transmission Date: 20210113
  Serious: Yes (Hospitalization, Other)
  Sender: FDA-Public Use
  Company Number: US-ASTRAZENECA-2019SE63998

PATIENT
  Age: 21909 Day
  Sex: Male
  Weight: 122.5 kg

DRUGS (32)
  1. LISINOPRIL. [Concomitant]
     Active Substance: LISINOPRIL
     Indication: BLOOD PRESSURE ABNORMAL
     Dates: start: 20091118, end: 20160501
  2. FISH OIL [Concomitant]
     Active Substance: FISH OIL
     Dates: start: 2006, end: 2016
  3. TUMS [Concomitant]
     Active Substance: CALCIUM CARBONATE
     Dates: start: 2005
  4. POTASSIUM CHLORIDE. [Concomitant]
     Active Substance: POTASSIUM CHLORIDE
  5. ENOXAPARIN [Concomitant]
     Active Substance: ENOXAPARIN
  6. PRILOSEC [Suspect]
     Active Substance: OMEPRAZOLE MAGNESIUM
     Indication: GASTROOESOPHAGEAL REFLUX DISEASE
     Dosage: GENERIC
     Route: 065
  7. GEMFIBROZIL. [Concomitant]
     Active Substance: GEMFIBROZIL
     Dates: start: 20070523
  8. CARVEDILOL. [Concomitant]
     Active Substance: CARVEDILOL
     Dates: start: 20060126, end: 20160505
  9. FUROSEMIDE. [Concomitant]
     Active Substance: FUROSEMIDE
     Indication: DIURETIC THERAPY
     Dates: start: 20060128, end: 20160420
  10. ROLAIDS [Concomitant]
     Active Substance: CALCIUM CARBONATE\MAGNESIUM HYDROXIDE
     Dates: start: 2005
  11. ATENOLOL. [Concomitant]
     Active Substance: ATENOLOL
     Dates: start: 20070523
  12. GLARGINE [Concomitant]
     Active Substance: INSULIN GLARGINE
  13. PRILOSEC [Suspect]
     Active Substance: OMEPRAZOLE MAGNESIUM
     Indication: GASTROOESOPHAGEAL REFLUX DISEASE
     Route: 048
     Dates: start: 200601, end: 200601
  14. INSULIN [Concomitant]
     Active Substance: INSULIN NOS
     Indication: DIABETES MELLITUS
     Dates: start: 20091118, end: 20160505
  15. EZETIMIBE. [Concomitant]
     Active Substance: EZETIMIBE
  16. NIACIN. [Concomitant]
     Active Substance: NIACIN
  17. FUROSEMIDE. [Concomitant]
     Active Substance: FUROSEMIDE
  18. HYDROCODONE [Concomitant]
     Active Substance: HYDROCODONE
  19. IBUPROFEN. [Concomitant]
     Active Substance: IBUPROFEN
  20. LIPITOR [Concomitant]
     Active Substance: ATORVASTATIN CALCIUM
  21. PRILOSEC [Suspect]
     Active Substance: OMEPRAZOLE MAGNESIUM
     Indication: GASTROOESOPHAGEAL REFLUX DISEASE
     Route: 048
     Dates: start: 20091117, end: 20110117
  22. PRILOSEC [Suspect]
     Active Substance: OMEPRAZOLE MAGNESIUM
     Indication: GASTROOESOPHAGEAL REFLUX DISEASE
     Dosage: GENERIC
     Route: 065
     Dates: start: 20060126
  23. ZANTAC [Concomitant]
     Active Substance: RANITIDINE HYDROCHLORIDE
     Dates: start: 20080801, end: 20080822
  24. TRIAMCINOLONE [Concomitant]
     Active Substance: TRIAMCINOLONE
  25. PRILOSEC [Suspect]
     Active Substance: OMEPRAZOLE MAGNESIUM
     Indication: GASTROOESOPHAGEAL REFLUX DISEASE
     Route: 048
  26. ASPIRIN. [Concomitant]
     Active Substance: ASPIRIN
     Indication: ANTICOAGULANT THERAPY
     Dates: start: 2006
  27. METRONIDAZOLE. [Concomitant]
     Active Substance: METRONIDAZOLE
  28. ALKA-SELTZER [Concomitant]
     Active Substance: ANHYDROUS CITRIC ACID\ASPIRIN\SODIUM BICARBONATE
     Dates: start: 2005
  29. GLIPIZIDE. [Concomitant]
     Active Substance: GLIPIZIDE
  30. DOCUSATE [Concomitant]
     Active Substance: DOCUSATE
  31. NITROGLYCERIN. [Concomitant]
     Active Substance: NITROGLYCERIN
  32. CHOLESTYRAMINE. [Concomitant]
     Active Substance: CHOLESTYRAMINE

REACTIONS (5)
  - Gastrooesophageal reflux disease [Not Recovered/Not Resolved]
  - End stage renal disease [Unknown]
  - Renal failure [Unknown]
  - Chronic kidney disease [Unknown]
  - Acute kidney injury [Recovered/Resolved]

NARRATIVE: CASE EVENT DATE: 20091117
